FAERS Safety Report 7353586-1 (Version None)
Quarter: 2011Q1

REPORT INFORMATION
  Report Type: 
  Country: None (occurrence: None)
  Receive Date: 20110315
  Receipt Date: 20110303
  Transmission Date: 20110831
  Serious: Yes (Other)
  Sender: FDA-Public Use
  Company Number: US-SANOFI-AVENTIS-2011SA013480

PATIENT
  Age: 76 Year
  Sex: Female

DRUGS (2)
  1. MULTAQ [Suspect]
     Indication: ATRIAL FIBRILLATION
     Route: 048
     Dates: start: 20110301
  2. XANAX [Suspect]
     Route: 065

REACTIONS (3)
  - ATRIAL FLUTTER [None]
  - DIZZINESS [None]
  - HEART RATE INCREASED [None]
